FAERS Safety Report 6143536-8 (Version None)
Quarter: 2009Q2

REPORT INFORMATION
  Report Type: 
  Country: None (occurrence: None)
  Receive Date: 20090403
  Receipt Date: 20090319
  Transmission Date: 20091009
  Serious: Yes (Hospitalization, Other)
  Sender: FDA-Public Use
  Company Number: DE-GENENTECH-274986

PATIENT
  Sex: Female

DRUGS (4)
  1. RITUXIMAB [Suspect]
     Indication: RHEUMATOID ARTHRITIS
     Dosage: 1 G, UNK
     Dates: start: 20080410
  2. METHOTREXATE [Suspect]
     Indication: RHEUMATOID ARTHRITIS
     Dosage: 10 MG, 1/WEEK
     Route: 048
     Dates: start: 20080401
  3. PREDNISOLONE [Suspect]
     Indication: RHEUMATOID ARTHRITIS
     Dosage: 4 MG, UNK
     Route: 048
  4. OMEPRAZOLE [Suspect]
     Indication: PROPHYLAXIS
     Dosage: 20 MG, UNK
     Dates: start: 20070201

REACTIONS (4)
  - CARDIAC FAILURE [None]
  - CORONARY ARTERY DISEASE [None]
  - HYPERTENSION [None]
  - MYOCARDIAL INFARCTION [None]
